FAERS Safety Report 11327398 (Version 1)
Quarter: 2015Q3

REPORT INFORMATION
  Report Type: Report from Study
  Country: FR (occurrence: FR)
  Receive Date: 20150731
  Receipt Date: 20150731
  Transmission Date: 20151125
  Serious: Yes (Death, Life-Threatening, Hospitalization)
  Sender: FDA-Public Use
  Company Number: FR-PFIZER INC-2015254612

PATIENT
  Age: 75 Year
  Sex: Male
  Weight: 70 kg

DRUGS (7)
  1. ARGANOVA [Suspect]
     Active Substance: ARGATROBAN
     Dosage: {0.5 UG/KG/MIN
     Route: 042
     Dates: start: 20130308, end: 20130309
  2. ARGANOVA [Suspect]
     Active Substance: ARGATROBAN
     Indication: HEPARIN-INDUCED THROMBOCYTOPENIA
     Dosage: 0.6 UG/KG/MIN
     Route: 042
     Dates: start: 20130224, end: 20130305
  3. CIPROFLOXACIN. [Concomitant]
     Active Substance: CIPROFLOXACIN
     Indication: SEPSIS
     Dosage: 800 MG, 1X/DAY
     Route: 042
     Dates: start: 20130304, end: 20130309
  4. SUFENTA [Concomitant]
     Active Substance: SUFENTANIL CITRATE
     Dosage: UNK
  5. BRISTOPEN [Concomitant]
     Active Substance: OXACILLIN SODIUM
     Indication: SEPSIS
     Dosage: 12 G, 1X/DAY
     Route: 042
     Dates: start: 20130302, end: 20130305
  6. MIDAZOLAM [Concomitant]
     Active Substance: MIDAZOLAM\MIDAZOLAM HYDROCHLORIDE
     Dosage: UNK
  7. NOREPINEPHRINE [Concomitant]
     Active Substance: NOREPINEPHRINE\NOREPINEPHRINE BITARTRATE
     Dosage: UNK

REACTIONS (1)
  - Pulmonary alveolar haemorrhage [Fatal]

NARRATIVE: CASE EVENT DATE: 20130305
